FAERS Safety Report 7722036-5 (Version None)
Quarter: 2011Q3

REPORT INFORMATION
  Report Type: 
  Country: None (occurrence: None)
  Receive Date: 20110825
  Receipt Date: 20110808
  Transmission Date: 20111222
  Serious: Yes (Hospitalization)
  Sender: FDA-Public Use
  Company Number: 15953144

PATIENT
  Age: 71 Year
  Sex: Male

DRUGS (1)
  1. WARFARIN SODIUM [Suspect]
     Indication: CEREBROVASCULAR ACCIDENT PROPHYLAXIS

REACTIONS (6)
  - ATRIAL FIBRILLATION [None]
  - INTERNATIONAL NORMALISED RATIO INCREASED [None]
  - HAEMORRHAGE INTRACRANIAL [None]
  - FEELING DRUNK [None]
  - DRUG INEFFECTIVE [None]
  - STRESS [None]
